FAERS Safety Report 6305402-4 (Version None)
Quarter: 2009Q3

REPORT INFORMATION
  Report Type: 
  Country: None (occurrence: None)
  Receive Date: 20090811
  Receipt Date: 20090728
  Transmission Date: 20100115
  Serious: Yes (Other)
  Sender: FDA-Public Use
  Company Number: JP-MYLANLABS-2009S1013323

PATIENT
  Age: 53 Year
  Sex: Male

DRUGS (2)
  1. RISPERIDONE [Suspect]
     Indication: SCHIZOPHRENIA
  2. RISPERIDONE [Suspect]

REACTIONS (1)
  - HYPOGLYCAEMIA [None]
